FAERS Safety Report 15953080 (Version 1)
Quarter: 2019Q1

REPORT INFORMATION
  Report Type: Spontaneous
  Country: US (occurrence: US)
  Receive Date: 20190211
  Receipt Date: 20190211
  Transmission Date: 20190417
  Serious: No
  Sender: FDA-Public Use
  Company Number: US-TEVA-2019-US-1011977

PATIENT
  Sex: Female

DRUGS (1)
  1. AJOVY [Suspect]
     Active Substance: FREMANEZUMAB-VFRM

REACTIONS (4)
  - Drug ineffective [Unknown]
  - Injection site mass [Unknown]
  - Drug withdrawal headache [Unknown]
  - Needle issue [Unknown]
